FAERS Safety Report 8176560-4 (Version None)
Quarter: 2012Q1

REPORT INFORMATION
  Report Type: 
  Country: None (occurrence: None)
  Receive Date: 20120120
  Receipt Date: 20111111
  Transmission Date: 20120608
  Serious: Yes (Other)
  Sender: FDA-Public Use
  Company Number: 2011SP053405

PATIENT
  Age: 14 Year
  Sex: Male

DRUGS (2)
  1. ALBUTEROL [Concomitant]
  2. DULERA ORAL INHALATION [Suspect]
     Indication: ASTHMA
     Dosage: 2 DF;BID;INH
     Route: 055

REACTIONS (1)
  - BLOOD PRESSURE INCREASED [None]
